FAERS Safety Report 19909362 (Version 3)
Quarter: 2021Q4

REPORT INFORMATION
  Report Type: Spontaneous
  Country: IN (occurrence: IN)
  Receive Date: 20211001
  Receipt Date: 20211119
  Transmission Date: 20220303
  Serious: Yes (Other)
  Sender: FDA-Public Use
  Company Number: IN-PFIZER INC-2019325222

PATIENT
  Age: 70 Year
  Sex: Female
  Weight: 89 kg

DRUGS (4)
  1. SUTENT [Suspect]
     Active Substance: SUNITINIB MALATE
     Indication: Metastatic renal cell carcinoma
     Dosage: 37.5 MG
     Route: 048
     Dates: start: 201807
  2. SUTENT [Suspect]
     Active Substance: SUNITINIB MALATE
     Dosage: 37.5 MG, CYCLIC (2 WEEK ON AND 1 WEEK OFF)
     Route: 048
     Dates: start: 20190626
  3. SOMPRAZ HP [Concomitant]
     Dosage: PSR 1-1
  4. FOLATE SODIUM [Concomitant]
     Active Substance: FOLATE SODIUM
     Dosage: 0.5 DAILY

REACTIONS (2)
  - Gait inability [Recovering/Resolving]
  - Haemoglobin decreased [Unknown]
